FAERS Safety Report 18020032 (Version 1)
Quarter: 2020Q3

REPORT INFORMATION
  Report Type: Spontaneous
  Country: US (occurrence: US)
  Receive Date: 20200714
  Receipt Date: 20200714
  Transmission Date: 20201103
  Serious: Yes (Death)
  Sender: FDA-Public Use
  Company Number: None

PATIENT
  Age: 55 Year
  Sex: Female

DRUGS (3)
  1. XELODA [Suspect]
     Active Substance: CAPECITABINE
     Indication: BREAST CANCER
     Route: 048
     Dates: start: 20200508, end: 20200528
  2. XELODA [Concomitant]
     Active Substance: CAPECITABINE
     Dates: start: 20200508, end: 20200528
  3. XELODA [Concomitant]
     Active Substance: CAPECITABINE
     Dates: start: 20200508, end: 20200528

REACTIONS (1)
  - Laboratory test abnormal [None]

NARRATIVE: CASE EVENT DATE: 20200710
